FAERS Safety Report 4844722-7 (Version None)
Quarter: 2005Q4

REPORT INFORMATION
  Report Type: 
  Country: None (occurrence: None)
  Receive Date: 20051129
  Receipt Date: 20051117
  Transmission Date: 20060501
  Serious: Yes (Hospitalization)
  Sender: FDA-Public Use
  Company Number: IBF20050023

PATIENT
  Age: 32 Year
  Sex: Female

DRUGS (1)
  1. IBUPROFEN [Suspect]
     Indication: HEADACHE
     Dosage: PO
     Route: 048
     Dates: start: 20040101, end: 20040101

REACTIONS (3)
  - PAROTID DUCT CYST [None]
  - TOXIC EPIDERMAL NECROLYSIS [None]
  - ULCERATIVE KERATITIS [None]
